FAERS Safety Report 20774893 (Version 1)
Quarter: 2022Q2

REPORT INFORMATION
  Report Type: Report from Study
  Country: BR (occurrence: BR)
  Receive Date: 20220502
  Receipt Date: 20220502
  Transmission Date: 20220720
  Serious: Yes (Other)
  Sender: FDA-Public Use
  Company Number: BR-ABBVIE-22K-020-4376426-00

PATIENT
  Sex: Female

DRUGS (1)
  1. HUMIRA [Suspect]
     Active Substance: ADALIMUMAB
     Indication: Psoriatic arthropathy
     Route: 058
     Dates: start: 20180104

REACTIONS (8)
  - Nodule [Unknown]
  - Fall [Unknown]
  - Lower limb fracture [Unknown]
  - Mastectomy [Unknown]
  - Dizziness [Unknown]
  - Mass [Unknown]
  - Diabetes mellitus [Unknown]
  - COVID-19 [Unknown]
